FAERS Safety Report 15164004 (Version 3)
Quarter: 2018Q3

REPORT INFORMATION
  Report Type: Spontaneous
  Country: JP (occurrence: JP)
  Receive Date: 20180719
  Receipt Date: 20180816
  Transmission Date: 20181010
  Serious: Yes (Other)
  Sender: FDA-Public Use
  Company Number: JP-ASTRAZENECA-2018SE90724

PATIENT
  Age: 80 Year
  Sex: Male

DRUGS (2)
  1. TAGRISSO [Suspect]
     Active Substance: OSIMERTINIB
     Indication: NON-SMALL CELL LUNG CANCER
     Route: 048
     Dates: start: 20180321
  2. AVASTIN [Suspect]
     Active Substance: BEVACIZUMAB
     Dosage: DOSE UNKNOWN
     Route: 065

REACTIONS (1)
  - Subdural haematoma [Unknown]
